FAERS Safety Report 8720034 (Version 4)
Quarter: 2012Q4

REPORT INFORMATION
  Report Type: 
  Country: BR (occurrence: BR)
  Receive Date: 20120813
  Receipt Date: 20121025
  Transmission Date: 20130627
  Serious: Yes (Death, Hospitalization)
  Sender: FDA-Public Use
  Company Number: BR-B.I. PHARMACEUTICALS,INC./RIDGEFIELD-2012-BR-00918BR

PATIENT
  Sex: Male

DRUGS (4)
  1. TRAYENTA [Suspect]
     Indication: TYPE 2 DIABETES MELLITUS
     Dosage: 5 mg
     Route: 048
     Dates: start: 201112
  2. CLOPIDOGREL [Suspect]
     Indication: ANGIOPLASTY
  3. ACETYLSALICYLIC ACID [Suspect]
  4. ALL OTHER MEDICATION [Concomitant]

REACTIONS (1)
  - Haemorrhagic stroke [Fatal]
